FAERS Safety Report 6054504-9 (Version None)
Quarter: 2009Q1

REPORT INFORMATION
  Report Type: 
  Country: None (occurrence: None)
  Receive Date: 20090127
  Receipt Date: 20090114
  Transmission Date: 20090719
  Serious: Yes (Hospitalization)
  Sender: FDA-Public Use
  Company Number: PHHY2009FR01898

PATIENT
  Sex: Female
  Weight: 10.62 kg

DRUGS (3)
  1. CLOZAPINE [Suspect]
     Dosage: UNK
     Route: 048
     Dates: start: 20080529
  2. MORPHINE [Suspect]
     Dosage: UNK
     Route: 048
     Dates: start: 20080529
  3. COCAINE [Suspect]
     Dosage: UNK
     Route: 048
     Dates: start: 20080529

REACTIONS (6)
  - ACCIDENTAL EXPOSURE [None]
  - BRADYPNOEA [None]
  - LOSS OF CONSCIOUSNESS [None]
  - MIOSIS [None]
  - SOMNOLENCE [None]
  - TACHYCARDIA [None]
